FAERS Safety Report 8017976-6 (Version None)
Quarter: 2011Q4

REPORT INFORMATION
  Report Type: 
  Country: None (occurrence: None)
  Receive Date: 20111228
  Receipt Date: 20111017
  Transmission Date: 20120403
  Serious: No
  Sender: FDA-Public Use
  Company Number: USA/USA/11/0021627

PATIENT

DRUGS (1)
  1. LETROZOLE [Suspect]
     Indication: PRODUCT USED FOR UNKNOWN INDICATION

REACTIONS (2)
  - ENDOMETRIOSIS [None]
  - PRODUCT QUALITY ISSUE [None]
